FAERS Safety Report 9441713 (Version 2)
Quarter: 2013Q3

REPORT INFORMATION
  Report Type: Spontaneous
  Country: US (occurrence: US)
  Receive Date: 20130806
  Receipt Date: 20130918
  Transmission Date: 20140515
  Serious: No
  Sender: FDA-Public Use
  Company Number: US-BIOGENIDEC-2013BI072322

PATIENT
  Age: 48 Year
  Sex: Female

DRUGS (2)
  1. TYSABRI [Suspect]
     Indication: MULTIPLE SCLEROSIS
     Route: 042
     Dates: start: 20120613, end: 20120613
  2. TYSABRI [Suspect]
     Indication: MULTIPLE SCLEROSIS
     Route: 042
     Dates: start: 20130118

REACTIONS (4)
  - Multiple sclerosis [Not Recovered/Not Resolved]
  - Drug specific antibody present [Unknown]
  - Mental impairment [Not Recovered/Not Resolved]
  - Drug ineffective [Not Recovered/Not Resolved]
